FAERS Safety Report 5869231-8 (Version None)
Quarter: 2008Q3

REPORT INFORMATION
  Report Type: 
  Country: None (occurrence: None)
  Receive Date: 20080903
  Receipt Date: 20080822
  Transmission Date: 20090109
  Serious: Yes (Death, Hospitalization, Other)
  Sender: FDA-Public Use
  Company Number: SE-ELI_LILLY_AND_COMPANY-SE200808004547

PATIENT
  Sex: Female
  Weight: 95.6 kg

DRUGS (8)
  1. BYETTA [Suspect]
     Indication: TYPE 2 DIABETES MELLITUS
     Dosage: 5 UG, 2/D
     Route: 065
     Dates: start: 20080701
  2. AVANDAMET [Concomitant]
     Dosage: 2X2 MG /1000MG/DAY
     Route: 065
     Dates: start: 20060404, end: 20080701
  3. AVANDAMET [Concomitant]
     Dosage: UNK, UNKNOWN
     Route: 065
     Dates: start: 20080709
  4. TRILAFON [Concomitant]
     Dosage: 180 MG/ML, EVERY 3RD WEEK
     Route: 065
  5. BURONIL [Concomitant]
     Dosage: 25 MG, AS NEEDED
     Route: 065
  6. LEVOTHYROXINE SODIUM [Concomitant]
     Dosage: UNK, UNKNOWN
     Route: 065
  7. NOVONORM [Concomitant]
     Dosage: 2 MG, 3/D
     Route: 065
  8. IMODIUM [Concomitant]
     Indication: DIARRHOEA
     Dosage: UNK, UNKNOWN
     Route: 065

REACTIONS (3)
  - BLOOD GLUCOSE INCREASED [None]
  - HOSPITALISATION [None]
  - ORGAN FAILURE [None]
